FAERS Safety Report 24933460 (Version 3)
Quarter: 2025Q1

REPORT INFORMATION
  Report Type: Spontaneous
  Country: PL (occurrence: PL)
  Receive Date: 20250206
  Receipt Date: 20250306
  Transmission Date: 20250408
  Serious: Yes (Other)
  Sender: AUROBINDO
  Company Number: PL-AUROBINDO-AUR-APL-2025-005541

PATIENT
  Age: 36 Year
  Sex: Female
  Weight: 59 kg

DRUGS (4)
  1. IBUPROFEN [Suspect]
     Active Substance: IBUPROFEN
     Indication: COVID-19
     Route: 065
  2. IBUPROFEN [Suspect]
     Active Substance: IBUPROFEN
     Indication: Pyrexia
  3. ACETAMINOPHEN [Suspect]
     Active Substance: ACETAMINOPHEN
     Indication: COVID-19
     Route: 065
  4. ASPIRIN [Suspect]
     Active Substance: ASPIRIN
     Indication: COVID-19
     Route: 065

REACTIONS (20)
  - Anosmia [Recovering/Resolving]
  - Ageusia [Recovering/Resolving]
  - Asthenia [Recovering/Resolving]
  - Aphasia [Recovering/Resolving]
  - Cough [Recovering/Resolving]
  - Cognitive disorder [Recovering/Resolving]
  - Dyspnoea exertional [Recovering/Resolving]
  - Disorientation [Recovering/Resolving]
  - Decreased appetite [Recovering/Resolving]
  - Dyspnoea [Recovering/Resolving]
  - Disturbance in attention [Recovering/Resolving]
  - Fatigue [Recovering/Resolving]
  - Gait disturbance [Recovering/Resolving]
  - Loss of personal independence in daily activities [Recovering/Resolving]
  - Muscular weakness [Recovering/Resolving]
  - Pallor [Recovering/Resolving]
  - Rhinorrhoea [Recovering/Resolving]
  - Syncope [Recovering/Resolving]
  - Sleep disorder [Recovering/Resolving]
  - Drug ineffective [Not Recovered/Not Resolved]
